FAERS Safety Report 5488566-4 (Version None)
Quarter: 2007Q4

REPORT INFORMATION
  Report Type: 
  Country: None (occurrence: None)
  Receive Date: 20071017
  Receipt Date: 20071008
  Transmission Date: 20080405
  Serious: Yes (Death)
  Sender: FDA-Public Use
  Company Number: FR-SANOFI-SYNTHELABO-A02200703021

PATIENT
  Sex: Male
  Weight: 64 kg

DRUGS (4)
  1. FOLINIC ACID [Concomitant]
     Route: 065
     Dates: start: 20060313, end: 20060314
  2. FLUOROURACIL [Concomitant]
     Route: 042
     Dates: start: 20060313, end: 20060314
  3. FLUOROURACIL [Concomitant]
     Route: 040
     Dates: start: 20060313, end: 20060314
  4. ELOXATIN [Suspect]
     Indication: COLON CANCER
     Route: 042
     Dates: start: 20060313, end: 20060314

REACTIONS (1)
  - ACUTE LEUKAEMIA [None]
